FAERS Safety Report 4337684-2 (Version None)
Quarter: 2004Q2

REPORT INFORMATION
  Report Type: 
  Country: None (occurrence: None)
  Receive Date: 20040413
  Receipt Date: 20030618
  Transmission Date: 20050107
  Serious: Yes (Hospitalization, Disabling)
  Sender: FDA-Public Use
  Company Number: JP-MERCK-0306USA02295

PATIENT
  Age: 84 Year
  Sex: Male
  Weight: 40 kg

DRUGS (7)
  1. AMLODIPINE BESYLATE [Concomitant]
     Indication: HYPERTENSION
     Route: 065
     Dates: start: 20011128, end: 20020426
  2. ASPIRIN [Concomitant]
     Indication: CEREBRAL INFARCTION
     Route: 065
     Dates: start: 20011128, end: 20020426
  3. FAMOTIDINE [Concomitant]
     Indication: GASTRITIS
     Route: 048
     Dates: start: 20011128, end: 20020313
  4. GLYCYRON [Concomitant]
     Indication: PROPHYLAXIS
     Route: 048
     Dates: start: 20020917, end: 20021114
  5. COZAAR [Suspect]
     Indication: HYPERTENSION
     Route: 048
     Dates: start: 20020917, end: 20030616
  6. SODIUM FERROUS CITRATE [Concomitant]
     Indication: ANAEMIA
     Route: 065
     Dates: start: 20020917, end: 20021114
  7. VITAMIN B COMPLEX [Concomitant]
     Indication: PROPHYLAXIS
     Route: 048
     Dates: start: 20020917, end: 20021114

REACTIONS (2)
  - HAEMORRHAGE SUBCUTANEOUS [None]
  - THROMBOCYTOPENIA [None]
